FAERS Safety Report 4636263-7 (Version None)
Quarter: 2005Q2

REPORT INFORMATION
  Report Type: 
  Country: None (occurrence: None)
  Receive Date: 20050415
  Receipt Date: 20040421
  Transmission Date: 20051028
  Serious: No
  Sender: FDA-Public Use
  Company Number: US-BRISTOL-MYERS SQUIBB COMPANY-12566774

PATIENT
  Age: 59 Year
  Sex: Female
  Weight: 64 kg

DRUGS (1)
  1. PARAPLATIN [Suspect]
     Indication: BREAST CANCER
     Dosage: THERAPY DATES: OCT-2003 TO 19-APR-2004
     Route: 042
     Dates: start: 20040409, end: 20040409

REACTIONS (1)
  - HYPERSENSITIVITY [None]
